FAERS Safety Report 8795424 (Version 2)
Quarter: 2013Q1

REPORT INFORMATION
  Report Type: Spontaneous
  Country: US (occurrence: US)
  Receive Date: 20120917
  Receipt Date: 20130116
  Transmission Date: 20140127
  Serious: Yes (Other)
  Sender: FDA-Public Use
  Company Number: US-BAYER-2012-096423

PATIENT
  Age: 89 Year
  Sex: Male
  Weight: 71 kg

DRUGS (2)
  1. ALEVE CAPLET/TABLET,MIDOL EXTENDED RELIEF CAPLET [Suspect]
     Indication: HEADACHE
     Dosage: 1 DF, ONCE
     Route: 048
     Dates: start: 2007, end: 2007
  2. ANTACIDS [Concomitant]

REACTIONS (2)
  - Loss of consciousness [Recovered/Resolved]
  - Expired drug administered [None]
